FAERS Safety Report 16208378 (Version 1)
Quarter: 2019Q2

REPORT INFORMATION
  Report Type: Spontaneous
  Country: IT (occurrence: IT)
  Receive Date: 20190417
  Receipt Date: 20190417
  Transmission Date: 20190711
  Serious: Yes (Other)
  Sender: FDA-Public Use
  Company Number: PHHY2019IT027026

PATIENT
  Age: 63 Year
  Sex: Female
  Weight: 58 kg

DRUGS (6)
  1. SIGNIFOR [Suspect]
     Active Substance: PASIREOTIDE
     Indication: NESIDIOBLASTOSIS
     Dosage: 0.6 MG, BID
     Route: 058
  2. DIAZOXIDE [Concomitant]
     Active Substance: DIAZOXIDE
     Dosage: 150 MG/D FOR 4 DAYS (PERIOD B)
     Route: 048
  3. DIAZOXIDE [Concomitant]
     Active Substance: DIAZOXIDE
     Indication: NESIDIOBLASTOSIS
     Dosage: 225 MG/D FOR 4 DAYS (PERIOD A)
     Route: 065
  4. DIAZOXIDE [Concomitant]
     Active Substance: DIAZOXIDE
     Dosage: 75 MG/D FOR 4 DAYS (PERIOD C)
     Route: 065
  5. SANDOSTATIN [Suspect]
     Active Substance: OCTREOTIDE ACETATE
     Indication: NESIDIOBLASTOSIS
     Dosage: 100 UG, QD
     Route: 058
     Dates: start: 201604
  6. HYDROCHLOROTHIAZIDE. [Concomitant]
     Active Substance: HYDROCHLOROTHIAZIDE
     Indication: NESIDIOBLASTOSIS
     Dosage: 12.5 MG, QD
     Route: 065

REACTIONS (9)
  - Anxiety [Unknown]
  - Insulinoma [Unknown]
  - Hypoglycaemia [Recovered/Resolved]
  - Weight increased [Unknown]
  - Fatigue [Unknown]
  - Food craving [Unknown]
  - Irritability [Unknown]
  - Hyperhidrosis [Unknown]
  - Product use in unapproved indication [Unknown]
